FAERS Safety Report 6348616-X (Version None)
Quarter: 2009Q3

REPORT INFORMATION
  Report Type: 
  Country: None (occurrence: None)
  Receive Date: 20090908
  Receipt Date: 20090902
  Transmission Date: 20100115
  Serious: Yes (Other)
  Sender: FDA-Public Use
  Company Number: 369552

PATIENT
  Age: 59 Year
  Sex: Male

DRUGS (3)
  1. PAMIDRONATE DISODIUM [Suspect]
     Indication: METASTASES TO BONE
     Dosage: 90 MG, 1 MONTH, INTRAVENOUS DRIP
     Route: 041
  2. PAMIDRONATE DISODIUM [Suspect]
     Indication: PROSTATE CANCER RECURRENT
     Dosage: 90 MG, 1 MONTH, INTRAVENOUS DRIP
     Route: 041
  3. LEUPROLIDE ACETATE [Concomitant]

REACTIONS (1)
  - DETACHMENT OF RETINAL PIGMENT EPITHELIUM [None]
